FAERS Safety Report 8213025-5 (Version None)
Quarter: 2012Q1

REPORT INFORMATION
  Report Type: 
  Country: None (occurrence: None)
  Receive Date: 20120229
  Receipt Date: 20110507
  Transmission Date: 20120608
  Serious: Yes (Other)
  Sender: FDA-Public Use
  Company Number: US-JNJFOC-20110505264

PATIENT
  Age: 47 Year
  Sex: Male
  Weight: 108.8 kg

DRUGS (2)
  1. ALL OTHER THERAPEUTIC PRODUCTS (ALL OTHER THERAPEUTIC PRODUCTS) [Concomitant]
  2. IBUPROFEN TABLETS [Suspect]
     Indication: BACK PAIN
     Dosage: 800 MG, ORAL
     Route: 048

REACTIONS (1)
  - RENAL DISORDER [None]
